FAERS Safety Report 18336786 (Version 1)
Quarter: 2020Q4

REPORT INFORMATION
  Report Type: Spontaneous
  Country: ES (occurrence: ES)
  Receive Date: 20201001
  Receipt Date: 20201001
  Transmission Date: 20210113
  Serious: Yes (Other)
  Sender: FDA-Public Use
  Company Number: ES-BRISTOL-MYERS SQUIBB COMPANY-BMS-2020-080229

PATIENT

DRUGS (2)
  1. SITRAVATINIB. [Suspect]
     Active Substance: SITRAVATINIB
     Indication: LIP AND/OR ORAL CAVITY CANCER
     Dosage: 120 MILLIGRAM, QD
     Route: 048
  2. NIVOLUMAB [Suspect]
     Active Substance: NIVOLUMAB
     Indication: LIP AND/OR ORAL CAVITY CANCER
     Dosage: 240 MILLIGRAM
     Route: 065

REACTIONS (1)
  - Thrombocytopenia [Unknown]
